FAERS Safety Report 8844496 (Version 1)
Quarter: 2012Q4

REPORT INFORMATION
  Report Type: Spontaneous
  Country: FR (occurrence: None)
  Receive Date: 20121012
  Receipt Date: 20121012
  Transmission Date: 20130627
  Serious: Yes (Hospitalization)
  Sender: FDA-Public Use
  Company Number: DSA_60058_2012

PATIENT
  Age: 65 Year
  Sex: Male

DRUGS (4)
  1. FLAGYL [Suspect]
     Indication: PLEURISY
     Dosage: (DF)
     Dates: start: 20120717, end: 20120730
  2. AUGMENTIN [Suspect]
     Indication: PLEURISY
     Dosage: (DF)
     Dates: start: 20120717, end: 20120730
  3. TRIATEC /00885601/ [Concomitant]
  4. ZYLORIC [Concomitant]

REACTIONS (5)
  - Vascular purpura [None]
  - Leukocytoclastic vasculitis [None]
  - Rheumatoid factor positive [None]
  - Oropharyngeal pain [None]
  - Upper respiratory fungal infection [None]
